FAERS Safety Report 8772112 (Version 2)
Quarter: 2015Q3

REPORT INFORMATION
  Report Type: Report from Study
  Country: US (occurrence: US)
  Receive Date: 20120905
  Receipt Date: 20150701
  Transmission Date: 20151125
  Serious: Yes (Death, Other)
  Sender: FDA-Public Use
  Company Number: US-ROCHE-1097794

PATIENT
  Sex: Male

DRUGS (22)
  1. AVASTIN [Suspect]
     Active Substance: BEVACIZUMAB
     Route: 042
  2. ZOMETA [Suspect]
     Active Substance: ZOLEDRONIC ACID
     Indication: PRODUCT USED FOR UNKNOWN INDICATION
     Route: 065
  3. BENADRYL [Concomitant]
     Active Substance: DIPHENHYDRAMINE HYDROCHLORIDE
     Route: 042
  4. TAGAMET [Concomitant]
     Active Substance: CIMETIDINE
     Route: 042
  5. DEXAMETHASONE. [Concomitant]
     Active Substance: DEXAMETHASONE
     Route: 065
  6. FENTANYL. [Concomitant]
     Active Substance: FENTANYL
     Dosage: PATCH
     Route: 065
  7. TARCEVA [Suspect]
     Active Substance: ERLOTINIB HYDROCHLORIDE
     Indication: RENAL CANCER
     Route: 048
  8. LIPITOR [Concomitant]
     Active Substance: ATORVASTATIN CALCIUM
  9. NYSTATIN. [Concomitant]
     Active Substance: NYSTATIN
     Indication: CANDIDA INFECTION
  10. AVASTIN [Suspect]
     Active Substance: BEVACIZUMAB
     Route: 042
  11. TYLENOL [Concomitant]
     Active Substance: ACETAMINOPHEN
     Route: 048
  12. AVASTIN [Suspect]
     Active Substance: BEVACIZUMAB
     Indication: RENAL CANCER
     Route: 042
     Dates: start: 20050803
  13. VENOFER [Concomitant]
     Active Substance: IRON SUCROSE
     Route: 042
  14. OXYCODONE [Concomitant]
     Active Substance: OXYCODONE
     Dosage: P.R.N
     Route: 065
  15. VITAMIN B12 [Concomitant]
     Active Substance: CYANOCOBALAMIN
  16. VENOFER [Concomitant]
     Active Substance: IRON SUCROSE
     Route: 042
  17. FLUOROURACIL. [Concomitant]
     Active Substance: FLUOROURACIL
  18. FOLIC ACID. [Concomitant]
     Active Substance: FOLIC ACID
  19. ADVIL [Concomitant]
     Active Substance: IBUPROFEN
  20. ARANESP [Concomitant]
     Active Substance: DARBEPOETIN ALFA
     Route: 058
  21. AMBIEN [Concomitant]
     Active Substance: ZOLPIDEM TARTRATE
     Indication: INSOMNIA
  22. ACIPHEX [Concomitant]
     Active Substance: RABEPRAZOLE SODIUM

REACTIONS (19)
  - Temperature intolerance [Unknown]
  - Paraesthesia [Unknown]
  - Anaemia [Recovering/Resolving]
  - Off label use [Unknown]
  - Drug ineffective [Unknown]
  - Death [Fatal]
  - Insomnia [Unknown]
  - Somnolence [Unknown]
  - Proteinuria [Unknown]
  - Candida infection [Unknown]
  - Hyponatraemia [Recovering/Resolving]
  - Asthenia [Unknown]
  - Back pain [Unknown]
  - Glycosuria [Unknown]
  - Arthralgia [Unknown]
  - Decreased appetite [Unknown]
  - Acute kidney injury [Unknown]
  - Stomatitis [Unknown]
  - Rash [Unknown]
